FAERS Safety Report 10248542 (Version 1)
Quarter: 2014Q2

REPORT INFORMATION
  Report Type: Spontaneous
  Country: US (occurrence: None)
  Receive Date: 20140617
  Receipt Date: 20140617
  Transmission Date: 20141212
  Serious: Yes (Hospitalization)
  Sender: FDA-Public Use
  Company Number: None

PATIENT
  Age: 95 Year
  Sex: Male
  Weight: 77 kg

DRUGS (8)
  1. METFORMIN 500 MG [Suspect]
     Indication: DIABETES MELLITUS
     Dosage: 1 TABLET  BID  ORAL
     Route: 048
  2. GLYBURIDE [Suspect]
     Indication: DIABETES MELLITUS
     Dosage: 2 PILLS  QD   ORAL
     Route: 048
  3. ASPIRIN [Concomitant]
  4. ATORVASTATIN [Concomitant]
  5. CALCIUM CARBONATE W/VIT D [Concomitant]
  6. FERROUS SULFATE [Concomitant]
  7. LOSARTAN [Concomitant]
  8. OMEGA-3 FATTY ACIDS [Concomitant]

REACTIONS (4)
  - Cold sweat [None]
  - Fatigue [None]
  - Hypoglycaemia [None]
  - Mental status changes [None]
